FAERS Safety Report 4578683-5 (Version None)
Quarter: 2005Q1

REPORT INFORMATION
  Report Type: 
  Country: None (occurrence: None)
  Receive Date: 20050211
  Receipt Date: 20030127
  Transmission Date: 20050727
  Serious: Yes (Disabling, Congenital Anomaly)
  Sender: FDA-Public Use
  Company Number: FR-ROCHE-330422

PATIENT
  Sex: Female
  Weight: 3.1 kg

DRUGS (5)
  1. CLONAZEPAM [Suspect]
     Indication: DRUG USE FOR UNKNOWN INDICATION
     Dates: start: 20020619, end: 20021118
  2. DEPAKENE [Suspect]
     Indication: DRUG USE FOR UNKNOWN INDICATION
     Dates: start: 20020619
  3. DEPAKENE [Suspect]
     Dosage: CONTINUED AFTER PREGNANCY.
  4. TEGRETOL [Suspect]
     Indication: DRUG USE FOR UNKNOWN INDICATION
     Dates: start: 20020619
  5. TEGRETOL [Suspect]
     Dosage: CONTINUED AFTER PREGNANCY.

REACTIONS (5)
  - DRUG EXPOSURE DURING PREGNANCY [None]
  - HIP DYSPLASIA [None]
  - MOBILITY DECREASED [None]
  - MULTIPLE CONGENITAL ABNORMALITIES [None]
  - TALIPES [None]
